FAERS Safety Report 5525511-7 (Version None)
Quarter: 2007Q4

REPORT INFORMATION
  Report Type: 
  Country: None (occurrence: None)
  Receive Date: 20071126
  Receipt Date: 20071116
  Transmission Date: 20080405
  Serious: Yes (Hospitalization)
  Sender: FDA-Public Use
  Company Number: A0694961A

PATIENT
  Age: 78 Year
  Sex: Female

DRUGS (20)
  1. ADVAIR DISKUS 100/50 [Suspect]
     Indication: CHRONIC OBSTRUCTIVE PULMONARY DISEASE
     Dosage: 1PUFF TWICE PER DAY
     Route: 055
     Dates: start: 20060101
  2. ROCEPHIN [Concomitant]
  3. CYMBALTA [Concomitant]
  4. PREDNISONE TAB [Concomitant]
  5. LYRICA [Concomitant]
  6. MIACALCIN [Concomitant]
  7. OSCAL [Concomitant]
  8. CALTRATE [Concomitant]
  9. NIFEREX [Concomitant]
  10. NOVOLIN 50/50 [Concomitant]
  11. PLAVIX [Concomitant]
  12. PROTONIX [Concomitant]
  13. SENOKOT [Concomitant]
  14. SYNTHROID [Concomitant]
  15. SINGULAIR [Concomitant]
  16. TENORMIN [Concomitant]
  17. M.V.I. [Concomitant]
  18. VASOTEC [Concomitant]
  19. IMMUNE GLOBULIN INTRAVENOUS (HUMAN) [Concomitant]
     Route: 042
  20. NEBULIZER [Concomitant]

REACTIONS (4)
  - HERPES ZOSTER [None]
  - LUNG INFECTION [None]
  - PNEUMONIA [None]
  - RIB FRACTURE [None]
